FAERS Safety Report 10153935 (Version 2)
Quarter: 2014Q2

REPORT INFORMATION
  Report Type: Spontaneous
  Country: US (occurrence: None)
  Receive Date: 20140502
  Receipt Date: 20140519
  Transmission Date: 20141212
  Serious: Yes (Hospitalization)
  Sender: FDA-Public Use
  Company Number: US-000766

PATIENT
  Age: 56 Year
  Sex: Female

DRUGS (9)
  1. GATTEX [Suspect]
     Indication: SHORT-BOWEL SYNDROME
     Route: 058
     Dates: start: 20130710, end: 201402
  2. SOLUTIONS FOR PARENTERAL NUTRITION [Concomitant]
  3. LOVENOX [Concomitant]
  4. MULTIPLE VITAMINS [Concomitant]
  5. VITAMIN D NOS [Concomitant]
  6. ZINC [Concomitant]
  7. MAGNESIUM [Concomitant]
  8. ESCITALOPRAM [Concomitant]
  9. VITAMIN A [Concomitant]

REACTIONS (8)
  - Oedema peripheral [None]
  - Abdominal pain [None]
  - Nausea [None]
  - Weight decreased [None]
  - Alopecia [None]
  - Onychomadesis [None]
  - Injection site pain [None]
  - Hip fracture [None]
